FAERS Safety Report 6986632-5 (Version None)
Quarter: 2010Q3

REPORT INFORMATION
  Report Type: 
  Country: None (occurrence: None)
  Receive Date: 20100915
  Receipt Date: 20090715
  Transmission Date: 20110219
  Serious: No
  Sender: FDA-Public Use
  Company Number: US-WYE-H10180309

PATIENT
  Sex: Female
  Weight: 49.94 kg

DRUGS (10)
  1. PRISTIQ [Suspect]
     Indication: DEPRESSION
     Route: 048
     Dates: start: 20090601
  2. CARAFATE [Concomitant]
  3. PROVENTIL [Concomitant]
  4. OXYCODONE [Concomitant]
  5. CLARITIN [Concomitant]
  6. CLONAZEPAM [Concomitant]
  7. FIORICET [Concomitant]
  8. VITAMIN D [Concomitant]
  9. VITAMIN K TAB [Concomitant]
  10. VALTREX [Concomitant]

REACTIONS (3)
  - ABDOMINAL PAIN [None]
  - PEPTIC ULCER HAEMORRHAGE [None]
  - VISION BLURRED [None]
